FAERS Safety Report 7788840-2 (Version None)
Quarter: 2011Q3

REPORT INFORMATION
  Report Type: 
  Country: None (occurrence: None)
  Receive Date: 20110928
  Receipt Date: 20110913
  Transmission Date: 20111222
  Serious: Yes (Other)
  Sender: FDA-Public Use
  Company Number: 2011P1008745

PATIENT
  Age: 74 Year
  Sex: Female
  Weight: 68.0396 kg

DRUGS (12)
  1. VITAMIN D [Concomitant]
  2. TIMOLOL EYE DROPS [Concomitant]
  3. METOPROLOL TARTRATE [Concomitant]
  4. LOSARTAN POTASSIUM [Concomitant]
  5. WARFARIN SODIUM [Suspect]
     Indication: HEART VALVE REPLACEMENT
     Dosage: 5 MG, QD 4 DAYS/WK, PO
     Route: 048
     Dates: start: 20110907
  6. WARFARIN SODIUM [Suspect]
     Indication: HEART VALVE REPLACEMENT
     Dosage: 5 MG, QD 4 DAYS/WK, PO
     Route: 048
     Dates: start: 20060101, end: 20110905
  7. PRAVASTATIN [Concomitant]
  8. WARFARIN SODIUM [Suspect]
     Indication: HEART VALVE REPLACEMENT
     Dosage: 2.5 MG, QD 3 DAYS/WK, PO
     Route: 048
     Dates: start: 20060101, end: 20110905
  9. WARFARIN SODIUM [Suspect]
     Indication: HEART VALVE REPLACEMENT
     Dosage: 2.5 MG, QD 3 DAYS/WK, PO
     Route: 048
     Dates: start: 20110907
  10. TRILEPTAL [Concomitant]
  11. VERAPAMIL [Concomitant]
  12. LATANOPROST EYE DROPS [Concomitant]

REACTIONS (4)
  - DENTAL CARIES [None]
  - PERIODONTAL DISEASE [None]
  - TOOTH FRACTURE [None]
  - INTERNATIONAL NORMALISED RATIO INCREASED [None]
